FAERS Safety Report 7540792-6 (Version None)
Quarter: 2011Q2

REPORT INFORMATION
  Report Type: 
  Country: None (occurrence: None)
  Receive Date: 20110603
  Receipt Date: 20110519
  Transmission Date: 20111010
  Serious: Yes (Hospitalization)
  Sender: FDA-Public Use
  Company Number: IDA-00548

PATIENT
  Age: 77 Year
  Sex: Female

DRUGS (3)
  1. PROPRANOLOL [Suspect]
     Indication: MIGRAINE
     Route: 048
     Dates: start: 20110404, end: 20110412
  2. ATHYMIL (MIANSERIN HYDROCHLORIDE) [Concomitant]
  3. TERCIAN (CYAMEMAZINE) [Concomitant]

REACTIONS (2)
  - HYPOKALAEMIA [None]
  - DIARRHOEA [None]
